FAERS Safety Report 7668976-7 (Version None)
Quarter: 2011Q3

REPORT INFORMATION
  Report Type: 
  Country: None (occurrence: None)
  Receive Date: 20110808
  Receipt Date: 20110729
  Transmission Date: 20111222
  Serious: Yes (Hospitalization)
  Sender: FDA-Public Use
  Company Number: JP-GLAXOSMITHKLINE-B0736456A

PATIENT
  Sex: Female
  Weight: 58 kg

DRUGS (12)
  1. ULCERLMIN [Concomitant]
     Dosage: 3G PER DAY
     Route: 048
     Dates: start: 20060410
  2. SULFAMETHOXAZOLE [Concomitant]
     Route: 048
     Dates: start: 20060410, end: 20060413
  3. ALKERAN [Suspect]
     Indication: STEM CELL TRANSPLANT
     Dosage: 170MGM2 PER DAY
     Route: 042
     Dates: start: 20060411, end: 20060411
  4. POLYMYXIN B SULFATE [Concomitant]
     Dosage: 250IU3 PER DAY
     Route: 048
     Dates: start: 20060410, end: 20060428
  5. SULFAMETHOXAZOLE [Concomitant]
     Route: 048
     Dates: start: 20060428, end: 20060519
  6. KYTRIL [Concomitant]
     Dosage: 3MG PER DAY
     Route: 042
     Dates: start: 20060411, end: 20060412
  7. ALLOPURINOL [Concomitant]
     Dosage: 200MG PER DAY
     Route: 048
     Dates: start: 20060410, end: 20060519
  8. ITRACONAZOLE [Concomitant]
     Dosage: 100MG PER DAY
     Route: 048
     Dates: start: 20060410, end: 20060519
  9. ALKERAN [Suspect]
     Dosage: 150MGM2 PER DAY
     Route: 042
     Dates: start: 20060412, end: 20060412
  10. FAMOTIDINE [Concomitant]
     Dosage: 20MG PER DAY
     Route: 048
     Dates: start: 20060410
  11. ZOVIRAX [Concomitant]
     Dosage: 1000MG PER DAY
     Route: 048
     Dates: start: 20060410, end: 20060519
  12. HEPARIN [Concomitant]
     Dosage: 5IU3 PER DAY
     Dates: start: 20060410, end: 20060519

REACTIONS (4)
  - SEPSIS [None]
  - DRUG INEFFECTIVE [None]
  - STREPTOCOCCUS TEST POSITIVE [None]
  - BRONCHOPULMONARY ASPERGILLOSIS [None]
